FAERS Safety Report 8785321 (Version 1)
Quarter: 2012Q4

REPORT INFORMATION
  Report Type: Spontaneous
  Country: DE (occurrence: None)
  Receive Date: 20120831
  Receipt Date: 20120831
  Transmission Date: 20130627
  Serious: Yes (Hospitalization)
  Sender: FDA-Public Use
  Company Number: GER/GER/12/0025487

PATIENT
  Age: 80 Year
  Sex: Male
  Weight: 97 kg

DRUGS (2)
  1. CLOPIDOGREL [Suspect]
     Indication: DRUG INTOLERANCE
     Dosage: 75 mg 1 in 1 D
     Dates: start: 20120220, end: 20120228
  2. CORINFAR [Concomitant]

REACTIONS (4)
  - Vomiting [None]
  - Facial paresis [None]
  - Transient ischaemic attack [None]
  - Visual impairment [None]
